FAERS Safety Report 23146424 (Version 1)
Quarter: 2023Q4

REPORT INFORMATION
  Report Type: Spontaneous
  Country: US (occurrence: US)
  Receive Date: 20231104
  Receipt Date: 20231104
  Transmission Date: 20240109
  Serious: Yes (Other)
  Sender: FDA-Public Use
  Company Number: US-TEVA-2023-US-2942190

PATIENT
  Age: 26 Year
  Sex: Male

DRUGS (2)
  1. QUINIDINE [Suspect]
     Active Substance: QUINIDINE
     Indication: Evidence based treatment
     Route: 065
  2. METOPROLOL TARTRATE [Concomitant]
     Active Substance: METOPROLOL TARTRATE
     Indication: Tachycardia
     Dosage: 50 MILLIGRAM DAILY; 25 MG TWICE DAILY
     Route: 065

REACTIONS (2)
  - Headache [Unknown]
  - Tachycardia [Recovered/Resolved]
